FAERS Safety Report 20448291 (Version 1)
Quarter: 2022Q1

REPORT INFORMATION
  Report Type: Spontaneous
  Country: US (occurrence: US)
  Receive Date: 20220209
  Receipt Date: 20220209
  Transmission Date: 20220424
  Serious: No
  Sender: FDA-Public Use
  Company Number: US-NOVARTISTESTPH-NVSC2022US028069

PATIENT
  Sex: Female

DRUGS (1)
  1. MAYZENT [Suspect]
     Active Substance: SIPONIMOD
     Indication: Multiple sclerosis
     Dosage: 2 MG, QD
     Route: 065
     Dates: start: 20220110, end: 20220112

REACTIONS (8)
  - Paraesthesia oral [Unknown]
  - Throat irritation [Unknown]
  - Lip pruritus [Unknown]
  - Hypersensitivity [Unknown]
  - Fatigue [Unknown]
  - Drug intolerance [Unknown]
  - Dizziness [Unknown]
  - Headache [Unknown]
